FAERS Safety Report 9456334 (Version 1)
Quarter: 2013Q3

REPORT INFORMATION
  Report Type: Spontaneous
  Country: FR (occurrence: FR)
  Receive Date: 20130813
  Receipt Date: 20130813
  Transmission Date: 20140515
  Serious: Yes (Hospitalization)
  Sender: FDA-Public Use
  Company Number: FR-GLAXOSMITHKLINE-B0913242A

PATIENT
  Age: 61 Year
  Sex: Male

DRUGS (12)
  1. ZELITREX [Suspect]
     Indication: HERPES VIRUS INFECTION
     Dosage: 500MG TWICE PER DAY
     Route: 048
  2. DUROGESIC [Suspect]
     Indication: PAIN
     Route: 062
     Dates: end: 20130614
  3. EUPRESSYL [Suspect]
     Indication: HYPERTENSION
     Dosage: 30MG TWICE PER DAY
     Route: 048
  4. LOXEN [Suspect]
     Indication: HYPERTENSION
     Dosage: 50MG TWICE PER DAY
     Route: 048
  5. KARDEGIC [Suspect]
     Indication: PRODUCT USED FOR UNKNOWN INDICATION
     Dosage: 160MG PER DAY
     Route: 048
  6. RIVOTRIL [Suspect]
     Indication: EPILEPSY
     Dosage: 10DROP PER DAY
     Route: 048
  7. XATRAL [Suspect]
     Indication: PRODUCT USED FOR UNKNOWN INDICATION
     Dosage: 10MG PER DAY
     Route: 048
  8. INEXIUM [Suspect]
     Indication: GASTROOESOPHAGEAL REFLUX DISEASE
     Dosage: 40MG PER DAY
     Route: 048
  9. TIORFAN [Suspect]
     Indication: DIARRHOEA
     Dosage: 3UNIT PER DAY
     Route: 048
  10. CARDENSIEL [Suspect]
     Indication: CARDIAC FAILURE
     Dosage: 5MG PER DAY
     Route: 048
  11. CYMBALTA [Suspect]
     Indication: PRODUCT USED FOR UNKNOWN INDICATION
     Dosage: 30MG PER DAY
     Route: 048
  12. WELLVONE [Concomitant]
     Dosage: 2SP PER DAY
     Route: 048

REACTIONS (10)
  - Coma [Recovered/Resolved with Sequelae]
  - Grand mal convulsion [Recovered/Resolved]
  - Aphasia [Unknown]
  - Confusional state [Unknown]
  - Cerebellar syndrome [Unknown]
  - Extrapyramidal disorder [Unknown]
  - Action tremor [Unknown]
  - Eye disorder [Recovered/Resolved]
  - Malaise [Recovered/Resolved]
  - Loss of consciousness [Recovered/Resolved]
